FAERS Safety Report 19477221 (Version 1)
Quarter: 2021Q2

REPORT INFORMATION
  Report Type: Spontaneous
  Country: US (occurrence: US)
  Receive Date: 20210629
  Receipt Date: 20210629
  Transmission Date: 20210717
  Serious: Yes (Other)
  Sender: FDA-Public Use
  Company Number: None

PATIENT
  Age: 57 Year
  Sex: Female

DRUGS (21)
  1. WARFARIN [Concomitant]
     Active Substance: WARFARIN
  2. KETOCONAZOLE TOP SHAMPOO [Concomitant]
  3. METRONIDAZOLE TOP GEL [Concomitant]
  4. ONDANSETRON [Concomitant]
     Active Substance: ONDANSETRON
  5. NORTRIPTYLINE [Concomitant]
     Active Substance: NORTRIPTYLINE
  6. FLUOCINONIDE TOP OINT [Concomitant]
  7. CARVEDILOL. [Concomitant]
     Active Substance: CARVEDILOL
  8. REFRESH OPTIVE ADVANCED PF OPHT DROPPERETTE [Concomitant]
  9. TADALAFIL. [Concomitant]
     Active Substance: TADALAFIL
  10. VECTICAL TOP OINT [Concomitant]
  11. CYCLOBENZAPRINE. [Suspect]
     Active Substance: CYCLOBENZAPRINE
  12. FERROUS SULFATE. [Concomitant]
     Active Substance: FERROUS SULFATE
  13. OPSUMIT [Suspect]
     Active Substance: MACITENTAN
     Indication: PULMONARY ARTERIAL HYPERTENSION
     Route: 048
     Dates: start: 20190426
  14. FUROSEMIDE. [Concomitant]
     Active Substance: FUROSEMIDE
  15. ZADITOR OPHT DROP [Concomitant]
  16. CALCIUM WITH VIT D [Concomitant]
  17. SPIRONOLACTONE. [Concomitant]
     Active Substance: SPIRONOLACTONE
  18. GABAPENTIN. [Concomitant]
     Active Substance: GABAPENTIN
  19. MVI [Concomitant]
     Active Substance: VITAMINS
  20. LISINORIL [Concomitant]
     Active Substance: LISINOPRIL
  21. DERMA?SMOOTHE/FS SCALP OIL [Concomitant]

REACTIONS (3)
  - Dyspnoea [None]
  - Nausea [None]
  - Hypotension [None]

NARRATIVE: CASE EVENT DATE: 20210526
